FAERS Safety Report 4739880-9 (Version None)
Quarter: 2005Q3

REPORT INFORMATION
  Report Type: 
  Country: None (occurrence: None)
  Receive Date: 20050805
  Receipt Date: 20050727
  Transmission Date: 20060218
  Serious: Yes (Hospitalization)
  Sender: FDA-Public Use
  Company Number: 2005107471

PATIENT
  Sex: Male

DRUGS (1)
  1. ARTHRITIS FORMULA BENGAY (MENTHOL, METHYL SALICYLATE) [Suspect]
     Dosage: TOPICAL
     Route: 061

REACTIONS (1)
  - CHEST PAIN [None]
